FAERS Safety Report 8434965-8 (Version None)
Quarter: 2012Q2

REPORT INFORMATION
  Report Type: 
  Country: None (occurrence: None)
  Receive Date: 20120614
  Receipt Date: 20120601
  Transmission Date: 20120825
  Serious: Yes (Hospitalization, Other)
  Sender: FDA-Public Use
  Company Number: FR-CELGENEUS-056-21880-10122667

PATIENT
  Sex: Male

DRUGS (3)
  1. DEXAMETHASONE [Suspect]
     Indication: MULTIPLE MYELOMA
     Route: 048
     Dates: start: 20101130, end: 20101207
  2. REVLIMID [Suspect]
     Indication: MULTIPLE MYELOMA
     Dosage: 25 MILLIGRAM
     Route: 048
     Dates: start: 20101103, end: 20101123
  3. ELOTUZUMAB [Suspect]
     Indication: MULTIPLE MYELOMA
     Route: 041
     Dates: start: 20101201, end: 20101201

REACTIONS (2)
  - PROSTATE CANCER [None]
  - PROSTATITIS [None]
